FAERS Safety Report 7544381-9 (Version None)
Quarter: 2011Q2

REPORT INFORMATION
  Report Type: 
  Country: None (occurrence: None)
  Receive Date: 20110613
  Receipt Date: 20080327
  Transmission Date: 20111010
  Serious: Yes (Death, Hospitalization, Other)
  Sender: FDA-Public Use
  Company Number: PHFR2007GB03037

PATIENT
  Sex: Male

DRUGS (2)
  1. LITHIUM CARBONATE [Concomitant]
     Indication: MANIA
     Dosage: 800 MG / DAY
     Route: 048
     Dates: start: 20070501
  2. CLOZAPINE [Suspect]
     Indication: SCHIZOPHRENIA
     Route: 048
     Dates: start: 20070718

REACTIONS (8)
  - CARDIAC FAILURE [None]
  - RESPIRATORY ARREST [None]
  - RESPIRATORY DISORDER [None]
  - FULL BLOOD COUNT INCREASED [None]
  - CHRONIC OBSTRUCTIVE PULMONARY DISEASE [None]
  - PULMONARY FUNCTION TEST DECREASED [None]
  - CARDIOMEGALY [None]
  - VENTRICULAR FAILURE [None]
